FAERS Safety Report 7147143-X (Version None)
Quarter: 2010Q4

REPORT INFORMATION
  Report Type: 
  Country: None (occurrence: None)
  Receive Date: 20101209
  Receipt Date: 20090918
  Transmission Date: 20110411
  Serious: Yes (Death, Hospitalization)
  Sender: FDA-Public Use
  Company Number: US-ACTELION-A-NJ2009-25593

PATIENT

DRUGS (1)
  1. ILOPROST INHALATION SOLUTION UNKNOWN US [Suspect]
     Indication: PULMONARY ARTERIAL HYPERTENSION
     Route: 055
     Dates: start: 20080825

REACTIONS (2)
  - ANAEMIA [None]
  - DEATH [None]
